FAERS Safety Report 9190032 (Version 1)
Quarter: 2013Q1

REPORT INFORMATION
  Report Type: Spontaneous
  Country: US (occurrence: None)
  Receive Date: 20130322
  Receipt Date: 20130322
  Transmission Date: 20140127
  Serious: No
  Sender: FDA-Public Use
  Company Number: None

PATIENT
  Age: 6 Year
  Sex: Female
  Weight: 26.2 kg

DRUGS (6)
  1. DAPSONE [Suspect]
     Indication: ANTIFUNGAL PROPHYLAXIS
     Dosage: 50 MG DAILY
     Dates: start: 20120831, end: 20120918
  2. CEFEPIME [Concomitant]
  3. 6-MERCAPTOPURINE [Concomitant]
  4. ONDANSETRON [Concomitant]
  5. LIDOCAINE-PRILOCAINE [Concomitant]
  6. METHOTREXATE [Concomitant]

REACTIONS (4)
  - Febrile neutropenia [None]
  - Haemoglobin decreased [None]
  - Thrombocytopenia [None]
  - Bone marrow failure [None]
